FAERS Safety Report 8881633 (Version 1)
Quarter: 2012Q4

REPORT INFORMATION
  Report Type: Report from Study
  Country: BR (occurrence: BR)
  Receive Date: 20121101
  Receipt Date: 20121101
  Transmission Date: 20130627
  Serious: Yes (Other)
  Sender: FDA-Public Use
  Company Number: BR-ROCHE-1151345

PATIENT
  Age: 64 Year
  Sex: Female
  Weight: 71 kg

DRUGS (5)
  1. BEVACIZUMAB [Suspect]
     Indication: RECTAL CANCER
     Route: 065
     Dates: start: 20110103, end: 20110830
  2. BEVACIZUMAB [Suspect]
     Dosage: 8 infusion
     Route: 065
     Dates: start: 20110801, end: 20111230
  3. CAPECITABINE [Suspect]
     Indication: RECTAL CANCER
     Dosage: 12 cycles performed
     Route: 065
     Dates: start: 20110103, end: 20110830
  4. IRINOTECAN [Suspect]
     Indication: RECTAL CANCER
     Dosage: 8 cycles performed
     Route: 065
     Dates: start: 20110801, end: 20111230
  5. MITOMYCIN [Suspect]
     Indication: RECTAL CANCER
     Dosage: 2 cycles performed
     Route: 065
     Dates: start: 20120702, end: 20121018

REACTIONS (1)
  - Disease progression [Unknown]
